FAERS Safety Report 8029114-4 (Version None)
Quarter: 2012Q1

REPORT INFORMATION
  Report Type: 
  Country: None (occurrence: None)
  Receive Date: 20120106
  Receipt Date: 20120103
  Transmission Date: 20120608
  Serious: Yes (Death, Hospitalization)
  Sender: FDA-Public Use
  Company Number: NL-BRISTOL-MYERS SQUIBB COMPANY-16319857

PATIENT
  Age: 50 Year
  Sex: Male

DRUGS (12)
  1. OMEPRAZOLE [Concomitant]
     Dates: start: 20111122
  2. POLYETHYLENE GLYCOL [Concomitant]
     Dates: start: 20111005
  3. BMS833923 [Suspect]
     Indication: GASTROOESOPHAGEAL CANCER
     Dosage: LAST ADMINISTERED ON 27DEC2011(200MG)
     Route: 048
     Dates: start: 20110920, end: 20111227
  4. CODEINE [Concomitant]
     Dates: start: 20110927
  5. MOVIPREP [Concomitant]
  6. FUROSEMIDE [Concomitant]
     Dates: start: 20111103
  7. METOCLOPRAMIDE HYDROCHLORIDE [Concomitant]
     Dates: start: 20111005
  8. CISPLATIN [Suspect]
     Indication: GASTROOESOPHAGEAL CANCER
     Dosage: CISPLATIN 160MG(DAY1 EVERY 21DAYS PER PROTOCOL) LAST ADMINISTERED ON 30NOV2011(CYCLE 3)
     Route: 042
     Dates: start: 20111004, end: 20111130
  9. ONDANSETRON [Concomitant]
     Dates: start: 20111005
  10. CAPECITABINE [Suspect]
     Indication: GASTROOESOPHAGEAL CANCER
     Dosage: CAPECITABINE 4000MG (DAY1-14 EVERY 21DAYS PER PROTOCOL) LAST ADMINISTERED ON 13DEC2011(CYCLE3)
     Route: 048
     Dates: start: 20111004, end: 20111213
  11. FRAGMIN [Concomitant]
     Dates: start: 20111114
  12. SUCRALFATE [Concomitant]
     Dates: start: 20111005

REACTIONS (1)
  - HEPATORENAL SYNDROME [None]
